FAERS Safety Report 20099363 (Version 5)
Quarter: 2022Q2

REPORT INFORMATION
  Report Type: Report from Study
  Country: US (occurrence: US)
  Receive Date: 20211122
  Receipt Date: 20220401
  Transmission Date: 20220721
  Serious: No
  Sender: FDA-Public Use
  Company Number: US-BIOVITRUM-2021US10955

PATIENT
  Age: 35 Year
  Sex: Female

DRUGS (4)
  1. KINERET [Suspect]
     Active Substance: ANAKINRA
     Indication: Gastrointestinal inflammation
     Dosage: EVERY MORNING
     Route: 058
     Dates: start: 20190419
  2. KINERET [Suspect]
     Active Substance: ANAKINRA
     Indication: Colitis
     Dosage: EVERY EVENING
     Route: 058
     Dates: start: 20190419
  3. KINERET [Suspect]
     Active Substance: ANAKINRA
  4. KINERET [Suspect]
     Active Substance: ANAKINRA
     Route: 058
     Dates: start: 201904

REACTIONS (14)
  - Gastrointestinal inflammation [Unknown]
  - Colitis [Unknown]
  - Condition aggravated [Unknown]
  - Dysphagia [Unknown]
  - Hypertension [Unknown]
  - Post-acute COVID-19 syndrome [Unknown]
  - Aphasia [Unknown]
  - Pharyngeal swelling [Unknown]
  - Injection site scar [Unknown]
  - Needle issue [Unknown]
  - Product distribution issue [Unknown]
  - Product physical issue [Unknown]
  - Product quality issue [Unknown]
  - Off label use [Unknown]

NARRATIVE: CASE EVENT DATE: 20190401
